FAERS Safety Report 12231428 (Version 2)
Quarter: 2016Q2

REPORT INFORMATION
  Report Type: Spontaneous
  Country: US (occurrence: US)
  Receive Date: 20160401
  Receipt Date: 20160401
  Transmission Date: 20160815
  Serious: No
  Sender: FDA-Public Use
  Company Number: US-TEVA-647059USA

PATIENT
  Sex: Male

DRUGS (2)
  1. PROVIGIL [Suspect]
     Active Substance: MODAFINIL
     Dosage: 800 MILLIGRAM DAILY;
     Route: 065
  2. NUVIGIL [Suspect]
     Active Substance: ARMODAFINIL
     Dosage: 150 MILLIGRAM DAILY;
     Route: 065

REACTIONS (3)
  - Asthenia [Not Recovered/Not Resolved]
  - Fatigue [Not Recovered/Not Resolved]
  - Somnolence [Not Recovered/Not Resolved]
